FAERS Safety Report 9535816 (Version 1)
Quarter: 2013Q3

REPORT INFORMATION
  Report Type: Spontaneous
  Country: US (occurrence: None)
  Receive Date: 20130917
  Receipt Date: 20130917
  Transmission Date: 20140515
  Serious: Yes (Hospitalization, Other)
  Sender: FDA-Public Use
  Company Number: None

PATIENT
  Age: 64 Year
  Sex: Male
  Weight: 88.45 kg

DRUGS (6)
  1. MIRALAX [Suspect]
     Indication: COLONOSCOPY
     Dosage: EVERY 10 MINUTES UNTIL GONE
     Route: 048
     Dates: start: 20130512, end: 20130512
  2. MULTIVITAMIN [Concomitant]
  3. GLUCOSAMINE CHONDROITIN [Concomitant]
  4. FISH OIL [Concomitant]
  5. RED RICE YEAST [Concomitant]
  6. SAW PALMETTO [Concomitant]

REACTIONS (3)
  - Syncope [None]
  - Abdominal pain upper [None]
  - Head injury [None]
